FAERS Safety Report 4505540-2 (Version None)
Quarter: 2004Q4

REPORT INFORMATION
  Report Type: 
  Country: None (occurrence: None)
  Receive Date: 20041119
  Receipt Date: 20040806
  Transmission Date: 20050328
  Serious: No
  Sender: FDA-Public Use
  Company Number: US-GLAXOSMITHKLINE-A0521300A

PATIENT
  Age: 77 Year
  Sex: Male

DRUGS (18)
  1. AVODART [Suspect]
     Indication: BENIGN PROSTATIC HYPERPLASIA
     Dosage: .5MG TWICE PER DAY
     Route: 048
     Dates: start: 20040101
  2. UNKNOWN MEDICATION [Concomitant]
  3. CALCITRIOL [Concomitant]
  4. DOSTINEX [Concomitant]
  5. GREEN TEA EXTRACT [Concomitant]
  6. GINGKO [Concomitant]
  7. SELENIUM TRACE METAL ADDITIVE [Concomitant]
  8. VITAMIN C [Concomitant]
  9. QUERCETIN [Concomitant]
  10. DIGESTIVE ENZYME [Concomitant]
  11. VITAMIN E [Concomitant]
  12. DIETARY SUPPLEMENT [Concomitant]
  13. OMEGA 3 FISH OIL [Concomitant]
  14. CONJUGATED LINOLEIC ACID [Concomitant]
  15. LYCOPENE [Concomitant]
  16. COD LIVER OIL [Concomitant]
  17. FLAX SEED [Concomitant]
  18. VITAMIN B COMPLEX CAP [Concomitant]

REACTIONS (1)
  - PROSTATIC SPECIFIC ANTIGEN INCREASED [None]
